FAERS Safety Report 9520071 (Version 2)
Quarter: 2014Q1

REPORT INFORMATION
  Report Type: Spontaneous
  Country: US (occurrence: None)
  Receive Date: 20130305
  Receipt Date: 20140306
  Transmission Date: 20141002
  Serious: Yes (Other)
  Sender: FDA-Public Use
  Company Number: 163-21880-12082407

PATIENT
  Age: 78 Year
  Sex: Male
  Weight: 78.93 kg

DRUGS (11)
  1. REVLIMID [Suspect]
     Indication: PLASMA CELL MYELOMA
     Dosage: 10 MG, 21 IN 21 D
     Route: 048
     Dates: start: 20120103, end: 201209
  2. FOLBIC (HEPAGRISEVIT FORTE-N TABLET) [Concomitant]
  3. COUMADIN (WARFARIN SODIUM) [Concomitant]
  4. VALTREX (VALACICLOVIR HYDDROCHLORIDE) [Concomitant]
  5. DEXAMETHASONE (DEXAMETHASONE) [Concomitant]
  6. ALKA-SELTZER [Concomitant]
  7. NEURONTIN (GABAPENTIN) [Concomitant]
  8. PRILOSEC (OMEPRAZOLE) [Concomitant]
  9. SLO-NIACIN (NICOTINIC ACID) [Concomitant]
  10. SYNTHROID (LEVOTHYROXINE SODIUM) [Concomitant]
  11. TERAZOSIN HCL(TERAZOSIN HYDROCHLORIDE) [Concomitant]

REACTIONS (6)
  - Fatigue [None]
  - Dizziness [None]
  - Muscle spasms [None]
  - Gastric disorder [None]
  - Diarrhoea [None]
  - Eating disorder [None]
